FAERS Safety Report 10888937 (Version 1)
Quarter: 2015Q1

REPORT INFORMATION
  Report Type: Spontaneous
  Country: JP (occurrence: JP)
  Receive Date: 20150305
  Receipt Date: 20150305
  Transmission Date: 20150721
  Serious: Yes (Death, Other)
  Sender: FDA-Public Use
  Company Number: JP-TEVA-544568ISR

PATIENT
  Age: 51 Year
  Sex: Male
  Weight: 67 kg

DRUGS (15)
  1. E-FEN BUCCAL [Suspect]
     Active Substance: FENTANYL CITRATE
     Dosage: 100 MICROGRAM DAILY;
     Route: 002
     Dates: start: 20140520, end: 20140528
  2. MAGMITT [Concomitant]
     Active Substance: MAGNESIUM OXIDE
     Dosage: 750 MILLIGRAM DAILY;
     Route: 048
  3. TAKEPRON [Concomitant]
     Active Substance: LANSOPRAZOLE
     Dosage: 15 MILLIGRAM DAILY;
     Route: 048
  4. FENTOS [Concomitant]
     Active Substance: FENTANYL
     Indication: CANCER PAIN
     Dosage: 5 MILLIGRAM DAILY;
     Route: 062
     Dates: start: 20140519, end: 20140623
  5. GABALON [Concomitant]
     Active Substance: BACLOFEN
     Dosage: 5 MILLIGRAM DAILY;
     Route: 048
     Dates: start: 20140624
  6. E-FEN BUCCAL [Suspect]
     Active Substance: FENTANYL CITRATE
     Indication: BREAKTHROUGH PAIN
     Dosage: 100 MICROGRAM DAILY; 0-100 MICROGRAM
     Route: 002
     Dates: start: 20140513, end: 20140514
  7. CALONAL [Concomitant]
     Active Substance: ACETAMINOPHEN
     Indication: CANCER PAIN
     Dosage: 1600 MILLIGRAM DAILY;
     Route: 048
     Dates: start: 20140501
  8. LYRICA [Concomitant]
     Active Substance: PREGABALIN
     Indication: CANCER PAIN
     Dosage: 600 MILLIGRAM DAILY;
     Route: 048
     Dates: start: 20140501
  9. NORITREN [Concomitant]
     Active Substance: NORTRIPTYLINE HYDROCHLORIDE
     Indication: CANCER PAIN
     Dosage: 40 MILLIGRAM DAILY;
     Route: 048
     Dates: start: 20140501
  10. PURSENNID [Concomitant]
     Active Substance: SENNOSIDES A AND B
     Dosage: 12 MILLIGRAM DAILY;
     Route: 048
  11. CYMBALTA [Concomitant]
     Active Substance: DULOXETINE HYDROCHLORIDE
     Indication: CANCER PAIN
     Route: 065
  12. L-CARTIN [Concomitant]
     Active Substance: LEVOCARNITINE HYDROCHLORIDE
     Dosage: 900 MILLIGRAM DAILY;
     Dates: start: 20140819
  13. TEGRETOL [Concomitant]
     Active Substance: CARBAMAZEPINE
     Indication: CANCER PAIN
     Route: 048
     Dates: start: 20140501
  14. DUROTEP [Concomitant]
     Active Substance: FENTANYL
     Indication: CANCER PAIN
     Dosage: 1500 MICROGRAM DAILY;
     Route: 062
     Dates: start: 20140512, end: 20140518
  15. FENTOS [Concomitant]
     Active Substance: FENTANYL
     Dosage: 4 MILLIGRAM DAILY;
     Route: 062
     Dates: start: 20140624

REACTIONS (1)
  - Salivary gland cancer [Fatal]
